FAERS Safety Report 5118159-X (Version None)
Quarter: 2006Q3

REPORT INFORMATION
  Report Type: 
  Country: None (occurrence: None)
  Receive Date: 20060926
  Receipt Date: 20060914
  Transmission Date: 20061208
  Serious: Yes (Hospitalization)
  Sender: FDA-Public Use
  Company Number: 2006112045

PATIENT
  Age: 24 Year
  Sex: Female

DRUGS (2)
  1. DEPO-PROVERA [Suspect]
     Indication: CONTRACEPTION
     Dosage: 150 MG (150 MG, 1ST INJECTION), INTRAMUSCULAR
     Route: 030
     Dates: start: 20051101, end: 20051101
  2. CLONAZEPAM [Concomitant]

REACTIONS (3)
  - AMENORRHOEA [None]
  - BLOOD PRESSURE DECREASED [None]
  - HEADACHE [None]
